FAERS Safety Report 24394175 (Version 5)
Quarter: 2024Q4

REPORT INFORMATION
  Report Type: Report from Study
  Country: ES (occurrence: ES)
  Receive Date: 20241004
  Receipt Date: 20241204
  Transmission Date: 20250114
  Serious: Yes (Hospitalization, Disabling)
  Sender: ABBVIE
  Company Number: ES-ABBVIE-5945239

PATIENT
  Age: 63 Year
  Sex: Male

DRUGS (2)
  1. CARBIDOPA\LEVODOPA [Suspect]
     Active Substance: CARBIDOPA\LEVODOPA
     Indication: Parkinson^s disease
     Route: 050
     Dates: start: 20210404
  2. CARBIDOPA\LEVODOPA [Suspect]
     Active Substance: CARBIDOPA\LEVODOPA

REACTIONS (3)
  - Cervical vertebral fracture [Not Recovered/Not Resolved]
  - Paraplegia [Not Recovered/Not Resolved]
  - Myelopathy [Unknown]

NARRATIVE: CASE EVENT DATE: 20240101
